FAERS Safety Report 20327363 (Version 1)
Quarter: 2022Q1

REPORT INFORMATION
  Report Type: Spontaneous
  Country: US (occurrence: None)
  Receive Date: 20220111
  Receipt Date: 20220111
  Transmission Date: 20220423
  Serious: Yes (unspecified)
  Sender: FDA-Public Use
  Company Number: None

PATIENT
  Age: 8 Year
  Sex: Male
  Weight: 36.8 kg

DRUGS (2)
  1. PRIVIGEN [Suspect]
     Active Substance: HUMAN IMMUNOGLOBULIN G
     Dates: start: 20220103, end: 20220103
  2. PRIVIGEN [Suspect]
     Active Substance: HUMAN IMMUNOGLOBULIN G
     Dates: start: 20220103, end: 20220103

REACTIONS (6)
  - Infusion related reaction [None]
  - Urticaria [None]
  - Erythema [None]
  - Erythema [None]
  - Asthenopia [None]
  - Limb discomfort [None]

NARRATIVE: CASE EVENT DATE: 20220103
